FAERS Safety Report 15898725 (Version 2)
Quarter: 2019Q1

REPORT INFORMATION
  Report Type: Spontaneous
  Country: US (occurrence: US)
  Receive Date: 20190201
  Receipt Date: 20190306
  Transmission Date: 20190417
  Serious: Yes (Hospitalization, Other)
  Sender: FDA-Public Use
  Company Number: US-PCCINC-2019-PEL-000024

PATIENT

DRUGS (1)
  1. GABLOFEN [Suspect]
     Active Substance: BACLOFEN
     Dosage: 50 MICROGRAM, QD
     Route: 037
     Dates: start: 20190108

REACTIONS (5)
  - Loss of consciousness [Not Recovered/Not Resolved]
  - Staphylococcal sepsis [Unknown]
  - Vomiting [Recovered/Resolved]
  - Hypotension [Unknown]
  - Catheter site infection [Unknown]

NARRATIVE: CASE EVENT DATE: 20190108
